FAERS Safety Report 4333052-8 (Version None)
Quarter: 2004Q2

REPORT INFORMATION
  Report Type: 
  Country: None (occurrence: None)
  Receive Date: 20040406
  Receipt Date: 20040224
  Transmission Date: 20050107
  Serious: Yes (Hospitalization)
  Sender: FDA-Public Use
  Company Number: DE-ROCHE-359736

PATIENT
  Age: 55 Year
  Sex: Female
  Weight: 69 kg

DRUGS (29)
  1. DACLIZUMAB [Suspect]
     Route: 042
     Dates: start: 20031227, end: 20031227
  2. DACLIZUMAB [Suspect]
     Route: 042
     Dates: start: 20040112, end: 20040224
  3. MYCOPHENOLATE MOFETIL [Suspect]
     Route: 048
     Dates: start: 20031228, end: 20040112
  4. MYCOPHENOLATE MOFETIL [Suspect]
     Route: 048
     Dates: start: 20040113, end: 20040218
  5. MYCOPHENOLATE MOFETIL [Suspect]
     Route: 048
     Dates: start: 20040219, end: 20040225
  6. MYCOPHENOLATE MOFETIL [Suspect]
     Route: 048
     Dates: start: 20040226
  7. CYCLOSPORINE [Suspect]
     Route: 048
     Dates: start: 20031228, end: 20031230
  8. CYCLOSPORINE [Suspect]
     Route: 048
     Dates: start: 20031231, end: 20040104
  9. CYCLOSPORINE [Suspect]
     Route: 048
     Dates: start: 20040105, end: 20040107
  10. CYCLOSPORINE [Suspect]
     Route: 048
     Dates: start: 20040108, end: 20040108
  11. CYCLOSPORINE [Suspect]
     Route: 048
     Dates: start: 20040109, end: 20040111
  12. CYCLOSPORINE [Suspect]
     Route: 048
     Dates: start: 20040112, end: 20040114
  13. CYCLOSPORINE [Suspect]
     Route: 048
     Dates: start: 20040115, end: 20040115
  14. CYCLOSPORINE [Suspect]
     Route: 048
     Dates: start: 20040116, end: 20040302
  15. CYCLOSPORINE [Suspect]
     Route: 048
     Dates: start: 20040303
  16. URBASON [Suspect]
     Route: 042
     Dates: start: 20030117, end: 20031226
  17. URBASON [Suspect]
     Route: 042
     Dates: start: 20031227, end: 20031227
  18. URBASON [Suspect]
     Route: 042
     Dates: start: 20031228, end: 20031228
  19. URBASON [Suspect]
     Route: 042
     Dates: start: 20031229, end: 20031229
  20. URBASON [Suspect]
     Route: 042
     Dates: start: 20031230, end: 20040105
  21. URBASON [Suspect]
     Route: 042
     Dates: start: 20040106, end: 20040107
  22. URBASON [Suspect]
     Route: 042
     Dates: start: 20040108, end: 20040109
  23. URBASON [Suspect]
     Route: 042
     Dates: start: 20040110, end: 20040121
  24. URBASON [Suspect]
     Route: 042
     Dates: start: 20040122, end: 20040305
  25. URBASON [Suspect]
     Route: 042
     Dates: start: 20040306
  26. VESDIL [Concomitant]
     Dosage: VESDIL 2.5 DOSE REPORTED AS 1-0-1.
  27. BELOC-ZOK [Concomitant]
     Dosage: DOSE REPORTED AS 1-0-0-1/2.
  28. NORVASC [Concomitant]
     Dosage: DOSE REPORTED AS 1-0-1.
  29. CYNT [Concomitant]
     Dosage: CYNT 0.3.  DOSE REPORTED AS 1-0-0-1.

REACTIONS (4)
  - CYTOMEGALOVIRUS INFECTION [None]
  - ENTEROBACTER INFECTION [None]
  - LYMPHOCELE [None]
  - UROSEPSIS [None]
